FAERS Safety Report 19221629 (Version 3)
Quarter: 2021Q2

REPORT INFORMATION
  Report Type: Spontaneous
  Country: US (occurrence: US)
  Receive Date: 20210506
  Receipt Date: 20210624
  Transmission Date: 20210717
  Serious: No
  Sender: FDA-Public Use
  Company Number: US-ORGANON-O2104USA001947

PATIENT
  Age: 21 Year
  Sex: Female
  Weight: 79.37 kg

DRUGS (1)
  1. NEXPLANON [Suspect]
     Active Substance: ETONOGESTREL
     Dosage: 1 IMPLANT, DOSE / FREQUENCY:  68MILLIGRAM, EVERY 3 YEARS, IN RIGHT UPPER ARM
     Route: 059
     Dates: start: 20191014

REACTIONS (4)
  - Device use issue [Unknown]
  - No adverse event [Unknown]
  - Complication associated with device [Not Recovered/Not Resolved]
  - Device breakage [Not Recovered/Not Resolved]

NARRATIVE: CASE EVENT DATE: 20210421
